FAERS Safety Report 11872913 (Version 4)
Quarter: 2016Q3

REPORT INFORMATION
  Report Type: Spontaneous
  Country: US (occurrence: US)
  Receive Date: 20151228
  Receipt Date: 20160906
  Transmission Date: 20161109
  Serious: No
  Sender: FDA-Public Use
  Company Number: US-PFIZER INC-2015453779

PATIENT
  Age: 68 Year
  Sex: Male
  Weight: 99.77 kg

DRUGS (3)
  1. BOSULIF [Suspect]
     Active Substance: BOSUTINIB MONOHYDRATE
     Dosage: 100 MG, 1X/DAY
     Route: 048
  2. BOSULIF [Suspect]
     Active Substance: BOSUTINIB MONOHYDRATE
     Indication: CHRONIC MYELOID LEUKAEMIA
     Dosage: 200 MG, 1X/DAY (2 TABLETS OF 100MG)
     Route: 048
     Dates: start: 20140728
  3. BOSULIF [Suspect]
     Active Substance: BOSUTINIB MONOHYDRATE
     Dosage: 200 MG, 1X/DAY (2 TABLETS OF 100MG)
     Route: 048
     Dates: start: 20140728

REACTIONS (5)
  - Arthralgia [Unknown]
  - Sciatica [Unknown]
  - Tooth discolouration [Unknown]
  - Tongue discolouration [Unknown]
  - Incorrect dosage administered [Unknown]

NARRATIVE: CASE EVENT DATE: 20151216
